FAERS Safety Report 24173176 (Version 1)
Quarter: 2024Q3

REPORT INFORMATION
  Report Type: Spontaneous
  Country: US (occurrence: US)
  Receive Date: 20240805
  Receipt Date: 20240805
  Transmission Date: 20241017
  Serious: No
  Sender: TAKEDA
  Company Number: US-TAKEDA-2024TUS076803

PATIENT
  Sex: Female

DRUGS (1)
  1. EOHILIA [Suspect]
     Active Substance: BUDESONIDE
     Indication: Erosive oesophagitis
     Dosage: 10 MILLIGRAM, BID
     Route: 065

REACTIONS (1)
  - Weight increased [Unknown]
